FAERS Safety Report 8287833-9 (Version None)
Quarter: 2012Q2

REPORT INFORMATION
  Report Type: 
  Country: None (occurrence: None)
  Receive Date: 20120416
  Receipt Date: 20120410
  Transmission Date: 20120825
  Serious: Yes (Other)
  Sender: FDA-Public Use
  Company Number: TR-PFIZER INC-2012089958

PATIENT
  Sex: Male

DRUGS (1)
  1. VARENICLINE TARTRATE [Suspect]
     Indication: SMOKING CESSATION THERAPY
     Dosage: UNK
     Dates: start: 20120101, end: 20120101

REACTIONS (11)
  - DIZZINESS [None]
  - DIPLOPIA [None]
  - VOMITING [None]
  - SOMNOLENCE [None]
  - WEIGHT DECREASED [None]
  - CEREBRAL ARTERY OCCLUSION [None]
  - BALANCE DISORDER [None]
  - NAUSEA [None]
  - SYNCOPE [None]
  - ASTHENIA [None]
  - HALLUCINATION [None]
